FAERS Safety Report 8391101-4 (Version None)
Quarter: 2012Q2

REPORT INFORMATION
  Report Type: 
  Country: None (occurrence: None)
  Receive Date: 20120529
  Receipt Date: 20120515
  Transmission Date: 20120825
  Serious: Yes (Other)
  Sender: FDA-Public Use
  Company Number: EG-JNJFOC-20120512505

PATIENT
  Sex: Female

DRUGS (4)
  1. ASPOCID [Concomitant]
     Route: 048
     Dates: start: 20110510, end: 20110801
  2. FOLIC ACID [Concomitant]
     Route: 048
     Dates: start: 20110510, end: 20110801
  3. INFLIXIMAB, RECOMBINANT [Suspect]
     Indication: EXPOSURE VIA SEMEN
     Route: 050
  4. PROGESTERONE [Concomitant]
     Route: 054
     Dates: start: 20110510, end: 20110801

REACTIONS (2)
  - MATERNAL EXPOSURE DURING PREGNANCY [None]
  - ABORTION SPONTANEOUS [None]
